FAERS Safety Report 16272277 (Version 1)
Quarter: 2019Q2

REPORT INFORMATION
  Report Type: Report from Study
  Country: US (occurrence: US)
  Receive Date: 20190503
  Receipt Date: 20190503
  Transmission Date: 20190711
  Serious: Yes (Hospitalization)
  Sender: FDA-Public Use
  Company Number: US-ACTELION-A-US2014-101547

PATIENT
  Age: 81 Year
  Sex: Female
  Weight: 49.89 kg

DRUGS (3)
  1. TRACLEER [Suspect]
     Active Substance: BOSENTAN
     Dosage: 125 MG, BID
     Route: 048
  2. TRACLEER [Suspect]
     Active Substance: BOSENTAN
     Indication: PULMONARY ARTERIAL HYPERTENSION
     Dosage: 125 MG, BID
     Route: 048
  3. AMLODIPINE [Concomitant]
     Active Substance: AMLODIPINE BESYLATE

REACTIONS (23)
  - Anaemia [Unknown]
  - Fall [Unknown]
  - Condition aggravated [Unknown]
  - Gait disturbance [Unknown]
  - Fatigue [Unknown]
  - Hypoacusis [Unknown]
  - Nasopharyngitis [Unknown]
  - Dizziness [Unknown]
  - Pain [Unknown]
  - Head injury [Unknown]
  - Facial bones fracture [Unknown]
  - CREST syndrome [Unknown]
  - Pain in extremity [Unknown]
  - Swelling [Unknown]
  - Scleroderma [Unknown]
  - Balance disorder [Unknown]
  - Raynaud^s phenomenon [Unknown]
  - Gastrooesophageal reflux disease [Unknown]
  - Malaise [Unknown]
  - Dyspepsia [Unknown]
  - Pulmonary arterial hypertension [Unknown]
  - Fluid retention [Unknown]
  - Scoliosis [Unknown]

NARRATIVE: CASE EVENT DATE: 201611
